FAERS Safety Report 8635561 (Version 4)
Quarter: 2012Q4

REPORT INFORMATION
  Report Type: Report from Study
  Country: CA (occurrence: CA)
  Receive Date: 20120626
  Receipt Date: 20120917
  Transmission Date: 20130627
  Serious: Yes (Other)
  Sender: FDA-Public Use
  Company Number: CA-ROCHE-1067328

PATIENT
  Age: 62 None
  Sex: Female

DRUGS (12)
  1. ZELBORAF [Suspect]
     Indication: METASTATIC MALIGNANT MELANOMA
     Route: 048
     Dates: start: 20120419
  2. ZELBORAF [Suspect]
     Dosage: dose reduced.
     Route: 048
     Dates: start: 201205, end: 20120828
  3. ATIVAN [Concomitant]
     Indication: SLEEP DISORDER
     Route: 065
  4. CORAL CALCIUM [Concomitant]
  5. MULTIVITAMINS/MINERALS [Concomitant]
  6. POTASSIUM [Concomitant]
  7. COQ-10 [Concomitant]
  8. VITAMIN D [Concomitant]
  9. SHARK LIVER OIL [Concomitant]
  10. MINOCYCLINE HCL [Concomitant]
     Route: 065
     Dates: start: 20120428
  11. BENADRYL [Concomitant]
     Route: 065
     Dates: start: 20120428
  12. HYDROCORTISONE [Concomitant]
     Route: 065
     Dates: start: 20120428

REACTIONS (17)
  - Squamous cell carcinoma [Unknown]
  - Memory impairment [Unknown]
  - Drug ineffective [Not Recovered/Not Resolved]
  - Urticaria [Recovering/Resolving]
  - Pyrexia [Recovered/Resolved]
  - Myalgia [Recovered/Resolved]
  - Arthralgia [Recovered/Resolved]
  - Urticaria [Not Recovered/Not Resolved]
  - Pruritus [Recovered/Resolved]
  - Erythema [Not Recovered/Not Resolved]
  - Arthralgia [Not Recovered/Not Resolved]
  - Sinusitis [Recovered/Resolved]
  - Dry eye [Not Recovered/Not Resolved]
  - Eye pain [Not Recovered/Not Resolved]
  - Dry skin [Not Recovered/Not Resolved]
  - Alopecia [Not Recovered/Not Resolved]
  - Pain in extremity [Not Recovered/Not Resolved]
